FAERS Safety Report 24112854 (Version 1)
Quarter: 2024Q3

REPORT INFORMATION
  Report Type: Report from Study
  Country: AR (occurrence: AR)
  Receive Date: 20240719
  Receipt Date: 20240719
  Transmission Date: 20241016
  Serious: Yes (Hospitalization, Other)
  Sender: GLAXOSMITHKLINE
  Company Number: AR-GLAXOSMITHKLINE-AR2024AMR089001

PATIENT

DRUGS (2)
  1. LAMOTRIGINE [Suspect]
     Active Substance: LAMOTRIGINE
     Indication: Seizure
     Dosage: UNK
  2. LAMOTRIGINE [Suspect]
     Active Substance: LAMOTRIGINE
     Indication: Headache

REACTIONS (15)
  - Type IV hypersensitivity reaction [Unknown]
  - Stevens-Johnson syndrome [Unknown]
  - Rash macular [Unknown]
  - Epidermolysis [Unknown]
  - Nikolsky^s sign [Unknown]
  - Oral mucosal blistering [Unknown]
  - Oropharyngeal blistering [Unknown]
  - Genital blister [Unknown]
  - Anal blister [Unknown]
  - Noninfective conjunctivitis [Unknown]
  - Mucosal erosion [Unknown]
  - Skin disorder [Unknown]
  - Pain of skin [Unknown]
  - Pyrexia [Unknown]
  - Oral disorder [Unknown]
